FAERS Safety Report 8914004 (Version 2)
Quarter: 2012Q4

REPORT INFORMATION
  Report Type: 
  Country: JP (occurrence: JP)
  Receive Date: 20121116
  Receipt Date: 20121227
  Transmission Date: 20130627
  Serious: Yes (Other)
  Sender: FDA-Public Use
  Company Number: JP-US-EMD SERONO, INC.-7172921

PATIENT
  Sex: Female

DRUGS (1)
  1. GONAL-F [Suspect]
     Indication: INFERTILITY
     Route: 058
     Dates: start: 201206

REACTIONS (3)
  - Ovarian hyperstimulation syndrome [Recovered/Resolved]
  - Pelvic venous thrombosis [Recovered/Resolved]
  - Pulmonary embolism [Recovered/Resolved]
